FAERS Safety Report 7707717-1 (Version None)
Quarter: 2011Q3

REPORT INFORMATION
  Report Type: 
  Country: None (occurrence: None)
  Receive Date: 20110824
  Receipt Date: 20110822
  Transmission Date: 20111222
  Serious: Yes (Life-Threatening)
  Sender: FDA-Public Use
  Company Number: US-ROXANE LABORATORIES, INC.-2011-RO-01172RO

PATIENT
  Age: 44 Year
  Sex: Female

DRUGS (4)
  1. MORPHINE [Suspect]
     Route: 042
  2. MORPHINE [Suspect]
     Indication: PAIN
     Route: 042
  3. HYDROCHLOROTHIAZIDE [Concomitant]
     Indication: HYPERTENSION
  4. ANTACIDS [Concomitant]

REACTIONS (1)
  - CARDIOGENIC SHOCK [None]
